FAERS Safety Report 4678314-X (Version None)
Quarter: 2005Q2

REPORT INFORMATION
  Report Type: 
  Country: None (occurrence: None)
  Receive Date: 20050531
  Receipt Date: 20050531
  Transmission Date: 20051028
  Serious: Yes (Death, Hospitalization)
  Sender: FDA-Public Use
  Company Number: None

PATIENT
  Age: 61 Year
  Sex: Female
  Weight: 112.7 kg

DRUGS (1)
  1. WARAFARIN 5 MG [Suspect]
     Indication: PULMONARY EMBOLISM
     Dosage: 5 MG DAILY ORAL
     Route: 048
     Dates: start: 20041001, end: 20041229

REACTIONS (5)
  - COAGULOPATHY [None]
  - ESCHERICHIA SEPSIS [None]
  - GASTROINTESTINAL HAEMORRHAGE [None]
  - INTERNATIONAL NORMALISED RATIO INCREASED [None]
  - RENAL FAILURE ACUTE [None]
